FAERS Safety Report 4359212-8 (Version None)
Quarter: 2004Q2

REPORT INFORMATION
  Report Type: 
  Country: None (occurrence: None)
  Receive Date: 20040512
  Receipt Date: 20021007
  Transmission Date: 20050107
  Serious: Yes (Other)
  Sender: FDA-Public Use
  Company Number: FR-GD-0210081

PATIENT
  Age: 66 Year
  Sex: Female

DRUGS (4)
  1. ROZEX     (METRODIAZOLE) [Suspect]
     Dates: start: 20020416, end: 20020901
  2. SINTROM [Concomitant]
  3. CORDARONE [Concomitant]
  4. FLECAINE [Concomitant]

REACTIONS (1)
  - PROTHROMBIN LEVEL ABNORMAL [None]
